FAERS Safety Report 12772154 (Version 1)
Quarter: 2016Q3

REPORT INFORMATION
  Report Type: Spontaneous
  Country: ES (occurrence: ES)
  Receive Date: 20160922
  Receipt Date: 20160922
  Transmission Date: 20161109
  Serious: Yes (Other)
  Sender: FDA-Public Use
  Company Number: ES-FRESENIUS KABI-FK201606740

PATIENT
  Age: 16 Year
  Sex: Female

DRUGS (8)
  1. ERYTHROPOIETIN [Concomitant]
     Active Substance: ERYTHROPOIETIN
  2. GEMCITABINE [Suspect]
     Active Substance: GEMCITABINE\GEMCITABINE HYDROCHLORIDE
     Indication: METASTASES TO LIVER
  3. CAPECITABINE (MANUFACTURER UNKNOWN) [Suspect]
     Active Substance: CAPECITABINE
     Indication: METASTASES TO LIVER
  4. GEMCITABINE [Suspect]
     Active Substance: GEMCITABINE\GEMCITABINE HYDROCHLORIDE
     Indication: METASTASES TO LUNG
  5. CAPECITABINE (MANUFACTURER UNKNOWN) [Suspect]
     Active Substance: CAPECITABINE
     Indication: ADRENOCORTICAL CARCINOMA
     Route: 065
  6. PEGFILGRASTIM [Concomitant]
     Active Substance: PEGFILGRASTIM
  7. GEMCITABINE [Suspect]
     Active Substance: GEMCITABINE\GEMCITABINE HYDROCHLORIDE
     Indication: ADRENOCORTICAL CARCINOMA
     Route: 065
  8. CAPECITABINE (MANUFACTURER UNKNOWN) [Suspect]
     Active Substance: CAPECITABINE
     Indication: METASTASES TO LUNG

REACTIONS (5)
  - Pancytopenia [Recovering/Resolving]
  - Leukocytosis [Recovering/Resolving]
  - Urinary tract infection [Recovering/Resolving]
  - Intracardiac thrombus [Recovering/Resolving]
  - Pyrexia [Recovering/Resolving]

NARRATIVE: CASE EVENT DATE: 201210
